FAERS Safety Report 13426900 (Version 1)
Quarter: 2017Q2

REPORT INFORMATION
  Report Type: Spontaneous
  Country: US (occurrence: US)
  Receive Date: 20170411
  Receipt Date: 20170411
  Transmission Date: 20170830
  Serious: No
  Sender: FDA-Public Use
  Company Number: None

PATIENT
  Age: 36 Year
  Sex: Male
  Weight: 71.1 kg

DRUGS (15)
  1. VENTOLIN HFA [Suspect]
     Active Substance: ALBUTEROL SULFATE
     Indication: RESPIRATION ABNORMAL
     Dosage: ?          OTHER STRENGTH:108 MCG;QUANTITY:200 PUFF(S);?
     Route: 055
     Dates: start: 20170306
  2. ALBUTEROL. [Concomitant]
     Active Substance: ALBUTEROL
  3. MULTI  VITAMIN [Concomitant]
     Active Substance: VITAMINS
  4. CRANBERRY 500 [Concomitant]
  5. VENTOLIN HFA [Suspect]
     Active Substance: ALBUTEROL SULFATE
     Indication: WHEEZING
     Dosage: ?          OTHER STRENGTH:108 MCG;QUANTITY:200 PUFF(S);?
     Route: 055
     Dates: start: 20170306
  6. SLOW IRON [Concomitant]
  7. ALLEGRA [Concomitant]
     Active Substance: FEXOFENADINE HYDROCHLORIDE
  8. LEXAPRO [Concomitant]
     Active Substance: ESCITALOPRAM OXALATE
  9. MAGNESIUM [Concomitant]
     Active Substance: MAGNESIUM
  10. KOMBIGLYZE XR [Concomitant]
     Active Substance: METFORMIN HYDROCHLORIDE\SAXAGLIPTIN HYDROCHLORIDE
  11. CHOLESTYRAMINE. [Concomitant]
     Active Substance: CHOLESTYRAMINE
  12. PROBIOTICS [Concomitant]
     Active Substance: PROBIOTICS NOS
  13. LEVALBUTEROL. [Concomitant]
     Active Substance: LEVALBUTEROL
  14. IPRATROPIUM [Concomitant]
     Active Substance: IPRATROPIUM
  15. VITAMIN D3 [Concomitant]
     Active Substance: CHOLECALCIFEROL

REACTIONS (1)
  - Oropharyngeal pain [None]

NARRATIVE: CASE EVENT DATE: 20170401
